FAERS Safety Report 21452528 (Version 3)
Quarter: 2024Q2

REPORT INFORMATION
  Report Type: Other
  Country: US (occurrence: None)
  Receive Date: 20221013
  Receipt Date: 20240531
  Transmission Date: 20240716
  Serious: Yes (Hospitalization, Other)
  Sender: FDA-Public Use
  Company Number: US-ROCHE-2696793

PATIENT
  Age: 43 Year
  Sex: Female
  Weight: 74.002 kg

DRUGS (15)
  1. RITUXAN [Suspect]
     Active Substance: RITUXIMAB
     Indication: Secondary progressive multiple sclerosis
     Route: 042
     Dates: start: 20200906, end: 20200906
  2. RITUXAN [Suspect]
     Active Substance: RITUXIMAB
     Indication: Relapsing multiple sclerosis
  3. OCREVUS [Suspect]
     Active Substance: OCRELIZUMAB
     Indication: Secondary progressive multiple sclerosis
     Dosage: DATE OF TREATMENT: 06/OCT/2020, 23/DEC/2021
     Route: 042
     Dates: start: 20200929
  4. OCREVUS [Suspect]
     Active Substance: OCRELIZUMAB
     Route: 042
     Dates: start: 20201006
  5. OCREVUS [Suspect]
     Active Substance: OCRELIZUMAB
     Route: 042
     Dates: start: 202010, end: 202010
  6. OCREVUS [Suspect]
     Active Substance: OCRELIZUMAB
     Route: 042
     Dates: start: 202010
  7. CLONAZEPAM [Concomitant]
     Active Substance: CLONAZEPAM
     Indication: Restless legs syndrome
     Route: 065
     Dates: start: 2002, end: 2002
  8. SOLU-MEDROL [Concomitant]
     Active Substance: METHYLPREDNISOLONE SODIUM SUCCINATE
     Indication: Premedication
     Dosage: PRE-MED FOR RITUXAN,
     Route: 042
     Dates: start: 202009, end: 202009
  9. SOLU-MEDROL [Concomitant]
     Active Substance: METHYLPREDNISOLONE SODIUM SUCCINATE
     Dosage: PRE-MED FOR OCREVUS,
     Route: 042
     Dates: start: 20200929, end: 20200929
  10. BENADRYL [Concomitant]
     Active Substance: DIPHENHYDRAMINE HYDROCHLORIDE
     Indication: Premedication
     Dosage: PRE-MED FOR RITUXAN,
     Route: 042
     Dates: start: 202009, end: 202009
  11. BENADRYL [Concomitant]
     Active Substance: DIPHENHYDRAMINE HYDROCHLORIDE
     Dosage: PRE-MED FOR OCREVUS,
     Route: 042
     Dates: start: 20200929, end: 20200929
  12. TYLENOL [Concomitant]
     Active Substance: ACETAMINOPHEN
     Indication: Premedication
     Route: 048
     Dates: start: 202009, end: 202009
  13. TYLENOL [Concomitant]
     Active Substance: ACETAMINOPHEN
     Dosage: ONGOING NO
     Route: 048
     Dates: start: 20200929, end: 20200929
  14. COPAXONE [Concomitant]
     Active Substance: GLATIRAMER ACETATE
     Indication: Secondary progressive multiple sclerosis
     Route: 042
     Dates: start: 202006, end: 202009
  15. METHADONE [Concomitant]
     Active Substance: METHADONE HYDROCHLORIDE
     Indication: Relapsing multiple sclerosis
     Dosage: ONGOING : UNKNOWN

REACTIONS (43)
  - Acute hepatic failure [Recovered/Resolved]
  - Non-alcoholic fatty liver [Recovered/Resolved]
  - Off label use [Unknown]
  - Chest discomfort [Recovered/Resolved]
  - Pruritus [Recovered/Resolved]
  - Throat tightness [Recovered/Resolved]
  - Nasal congestion [Recovered/Resolved]
  - Swelling face [Recovered/Resolved]
  - Urticaria [Recovered/Resolved]
  - Agitation [Recovered/Resolved]
  - Serum sickness [Unknown]
  - Fatigue [Not Recovered/Not Resolved]
  - Pain [Not Recovered/Not Resolved]
  - Hyperhidrosis [Recovered/Resolved]
  - Conjunctivitis [Not Recovered/Not Resolved]
  - Migraine [Not Recovered/Not Resolved]
  - Influenza like illness [Unknown]
  - Flushing [Not Recovered/Not Resolved]
  - B-lymphocyte count decreased [Not Recovered/Not Resolved]
  - Malaise [Unknown]
  - Infection [Recovered/Resolved]
  - Inflammation of lacrimal passage [Not Recovered/Not Resolved]
  - Pericarditis [Not Recovered/Not Resolved]
  - Urinary tract infection [Not Recovered/Not Resolved]
  - Weight increased [Recovered/Resolved]
  - Multiple sclerosis [Not Recovered/Not Resolved]
  - Headache [Not Recovered/Not Resolved]
  - Feeling hot [Recovered/Resolved]
  - Eye infection [Unknown]
  - Dizziness [Recovered/Resolved]
  - Musculoskeletal stiffness [Recovered/Resolved]
  - Gait disturbance [Recovered/Resolved]
  - Dehydration [Recovered/Resolved]
  - Dacryostenosis acquired [Not Recovered/Not Resolved]
  - Sinusitis [Unknown]
  - Malaise [Unknown]
  - COVID-19 [Unknown]
  - Infection [Recovered/Resolved]
  - Human chorionic gonadotropin increased [Not Recovered/Not Resolved]
  - Product storage error [Unknown]
  - Cardiac disorder [Not Recovered/Not Resolved]
  - Tooth infection [Not Recovered/Not Resolved]
  - Candida infection [Not Recovered/Not Resolved]

NARRATIVE: CASE EVENT DATE: 20200906
